FAERS Safety Report 6182386-3 (Version None)
Quarter: 2009Q2

REPORT INFORMATION
  Report Type: 
  Country: None (occurrence: None)
  Receive Date: 20090505
  Receipt Date: 20090505
  Transmission Date: 20091009
  Serious: Yes (Hospitalization)
  Sender: FDA-Public Use
  Company Number: None

PATIENT
  Sex: Female
  Weight: 71 kg

DRUGS (1)
  1. GEMCITABINE HCL [Suspect]
     Dosage: 250 MG

REACTIONS (5)
  - CHEST PAIN [None]
  - CULTURE URINE POSITIVE [None]
  - ENTEROBACTER INFECTION [None]
  - GLUCOSE URINE PRESENT [None]
  - SINUS TACHYCARDIA [None]
